FAERS Safety Report 4933345-7 (Version None)
Quarter: 2006Q1

REPORT INFORMATION
  Report Type: 
  Country: None (occurrence: None)
  Receive Date: 20060306
  Receipt Date: 20051004
  Transmission Date: 20060701
  Serious: Yes (Other)
  Sender: FDA-Public Use
  Company Number: US-MERCK-0510USA03092

PATIENT
  Age: 79 Year
  Sex: Female
  Weight: 73 kg

DRUGS (12)
  1. VIOXX [Suspect]
     Indication: ARTHRITIS
     Route: 048
     Dates: start: 20010601, end: 20041001
  2. DYAZIDE [Concomitant]
     Indication: BLOOD PRESSURE
     Route: 065
  3. LOPRESSOR [Concomitant]
     Indication: BLOOD PRESSURE
     Route: 065
  4. PEPCID [Concomitant]
     Indication: DYSPEPSIA
     Route: 065
  5. LORAZEPAM [Concomitant]
     Route: 065
  6. DITROPAN XL [Concomitant]
     Route: 065
  7. ARICEPT [Concomitant]
     Route: 065
  8. AMBIEN [Concomitant]
     Route: 065
  9. NASONEX [Concomitant]
     Route: 065
  10. CLARITIN [Concomitant]
     Route: 065
  11. DOXYCYCLINE [Concomitant]
     Route: 065
  12. CHLORHEXIDINE HYDROCHLORIDE [Concomitant]
     Route: 065

REACTIONS (7)
  - BENIGN BREAST NEOPLASM [None]
  - CEREBROVASCULAR ACCIDENT [None]
  - DIPLOPIA [None]
  - JOINT SWELLING [None]
  - MENTAL STATUS CHANGES [None]
  - SINUSITIS [None]
  - URINARY INCONTINENCE [None]
